FAERS Safety Report 15617787 (Version 1)
Quarter: 2018Q4

REPORT INFORMATION
  Report Type: Spontaneous
  Country: CN (occurrence: CN)
  Receive Date: 20181114
  Receipt Date: 20181114
  Transmission Date: 20190205
  Serious: Yes (Hospitalization)
  Sender: FDA-Public Use
  Company Number: CN-FRESENIUS KABI-FK201811458

PATIENT
  Age: 31 Year
  Sex: Female

DRUGS (3)
  1. COMPOUND AMIGO ACID INJECTION (18AA) [Concomitant]
     Indication: RESPIRATORY FAILURE
  2. COMPOUND AMIGO ACID INJECTION (18AA) [Concomitant]
     Indication: NUTRITIONAL SUPPLEMENTATION
     Dosage: 50ML/QD
     Route: 042
     Dates: start: 20180825, end: 20180825
  3. INTRALIPID [Suspect]
     Active Substance: EGG PHOSPHOLIPIDS\GLYCERIN\SOYBEAN OIL
     Indication: NUTRITIONAL SUPPLEMENTATION
     Dosage: 250ML/QD
     Route: 042
     Dates: start: 20180825, end: 20180825

REACTIONS (1)
  - Anaphylactic shock [Recovering/Resolving]

NARRATIVE: CASE EVENT DATE: 20180825
